FAERS Safety Report 22207247 (Version 1)
Quarter: 2023Q2

REPORT INFORMATION
  Report Type: Spontaneous
  Country: US (occurrence: US)
  Receive Date: 20230413
  Receipt Date: 20230413
  Transmission Date: 20230721
  Serious: Yes (Death, Hospitalization)
  Sender: FDA-Public Use
  Company Number: US-drreddys-LIT/USA/23/0163554

PATIENT
  Age: 60 Year
  Sex: Female

DRUGS (5)
  1. LEVOFLOXACIN [Suspect]
     Active Substance: LEVOFLOXACIN
     Indication: Actinomycosis
  2. PIPERACILLIN SODIUM\TAZOBACTAM SODIUM [Suspect]
     Active Substance: PIPERACILLIN SODIUM\TAZOBACTAM SODIUM
     Indication: Actinomycosis
  3. VANCOMYCIN [Suspect]
     Active Substance: VANCOMYCIN
     Indication: Actinomycosis
  4. MEROPENEM [Suspect]
     Active Substance: MEROPENEM
     Indication: Actinomycosis
  5. MICAFUNGIN [Suspect]
     Active Substance: MICAFUNGIN SODIUM
     Indication: Actinomycosis

REACTIONS (4)
  - Multiple organ dysfunction syndrome [Fatal]
  - Actinomycosis [Unknown]
  - Disease progression [Unknown]
  - Drug ineffective [Unknown]
